FAERS Safety Report 17794769 (Version 6)
Quarter: 2021Q4

REPORT INFORMATION
  Report Type: Spontaneous
  Country: JP (occurrence: JP)
  Receive Date: 20200516
  Receipt Date: 20211215
  Transmission Date: 20220303
  Serious: Yes (Death, Life-Threatening, Hospitalization, Other)
  Sender: FDA-Public Use
  Company Number: JP-UNITED THERAPEUTICS-UNT-2016-016675

PATIENT
  Age: 42 Year
  Sex: Female
  Weight: 56.2 kg

DRUGS (40)
  1. REMODULIN [Suspect]
     Active Substance: TREPROSTINIL
     Indication: Heritable pulmonary arterial hypertension
     Dosage: 0.0792 ?G/KG, CONTINUING
     Route: 041
     Dates: start: 20150601
  2. REMODULIN [Suspect]
     Active Substance: TREPROSTINIL
     Dosage: 0.10851 ?G/KG, CONTINUING
     Route: 041
     Dates: start: 20150820
  3. REMODULIN [Suspect]
     Active Substance: TREPROSTINIL
     Dosage: UNK, CONTINUING (DOSING RATE REDUCED)
     Route: 041
     Dates: start: 20161105
  4. REMODULIN [Suspect]
     Active Substance: TREPROSTINIL
     Dosage: 0.075 ?G/KG, CONTINUING
     Route: 041
     Dates: start: 201611
  5. REMODULIN [Suspect]
     Active Substance: TREPROSTINIL
     Dosage: 0.090 ?G/KG, CONTINUING
     Route: 041
  6. REMODULIN [Suspect]
     Active Substance: TREPROSTINIL
     Dosage: 0.113 ?G/KG, CONTINUING
     Route: 041
     Dates: start: 2019, end: 2019
  7. REMODULIN [Suspect]
     Active Substance: TREPROSTINIL
     Dosage: 0.1368 ?G/KG, CONTINUING
     Route: 041
     Dates: start: 2019, end: 20200507
  8. TRACLEER [Concomitant]
     Active Substance: BOSENTAN
     Indication: Heritable pulmonary arterial hypertension
     Dosage: UNK
     Route: 048
     Dates: start: 200901, end: 20150820
  9. ADCIRCA [Concomitant]
     Active Substance: TADALAFIL
     Indication: Heritable pulmonary arterial hypertension
     Dosage: UNK
     Route: 048
     Dates: start: 201205, end: 20190708
  10. LEVOTHYROXINE SODIUM [Concomitant]
     Active Substance: LEVOTHYROXINE SODIUM
     Indication: Hypothyroidism
     Dosage: UNK
     Route: 048
     Dates: end: 20200507
  11. RABEPRAZOLE SODIUM [Concomitant]
     Active Substance: RABEPRAZOLE SODIUM
     Indication: Chronic gastritis
     Dosage: UNK
     Route: 048
     Dates: end: 20200324
  12. TRICHLORMETHIAZIDE [Concomitant]
     Active Substance: TRICHLORMETHIAZIDE
     Indication: Right ventricular failure
     Dosage: UNK
     Route: 048
     Dates: end: 20200414
  13. SAMSCA [Concomitant]
     Active Substance: TOLVAPTAN
     Indication: Right ventricular failure
     Dosage: UNK
     Route: 048
     Dates: end: 20200414
  14. MOSAPRIDE CITRATE [Concomitant]
     Active Substance: MOSAPRIDE CITRATE
     Indication: Chronic gastritis
     Dosage: UNK
     Route: 048
     Dates: end: 20190830
  15. TEPRENONE [Concomitant]
     Active Substance: TEPRENONE
     Indication: Chronic gastritis
     Dosage: UNK
     Route: 048
     Dates: end: 20190830
  16. MIROPIN [Concomitant]
     Indication: Chronic gastritis
     Dosage: UNK
     Route: 048
     Dates: end: 20200324
  17. POTASSIUM ASPARTATE [Concomitant]
     Active Substance: POTASSIUM ASPARTATE
     Indication: Hypokalaemia
     Dosage: UNK
     Route: 048
     Dates: end: 20200324
  18. PRIMPERAN [Concomitant]
     Active Substance: METOCLOPRAMIDE HYDROCHLORIDE
     Indication: Chronic gastritis
     Dosage: UNK
     Route: 048
     Dates: end: 20200324
  19. DIETARY SUPPLEMENT\PROBIOTICS [Concomitant]
     Active Substance: DIETARY SUPPLEMENT\PROBIOTICS
     Indication: Chronic gastritis
     Dosage: UNK
     Route: 048
     Dates: end: 20200418
  20. ALLOPURINOL [Concomitant]
     Active Substance: ALLOPURINOL
     Indication: Hyperuricaemia
     Dosage: UNK
     Route: 048
     Dates: end: 201807
  21. FUROSEMIDE [Concomitant]
     Active Substance: FUROSEMIDE
     Indication: Right ventricular failure
     Dosage: UNK
     Route: 048
     Dates: end: 20190919
  22. FUROSEMIDE [Concomitant]
     Active Substance: FUROSEMIDE
     Indication: Heritable pulmonary arterial hypertension
     Dosage: UNK
     Route: 065
     Dates: start: 20190920, end: 20200504
  23. TORSEMIDE [Concomitant]
     Active Substance: TORSEMIDE
     Indication: Right ventricular failure
     Dosage: UNK
     Route: 048
     Dates: end: 20200414
  24. SODIUM FERROUS CITRATE [Concomitant]
     Active Substance: SODIUM FERROUS CITRATE
     Indication: Anaemia
     Dosage: UNK
     Route: 048
     Dates: end: 20200408
  25. SPIRONOLACTONE [Concomitant]
     Active Substance: SPIRONOLACTONE
     Indication: Right ventricular failure
     Dosage: UNK
     Route: 048
     Dates: end: 20200414
  26. SINGULAIR [Concomitant]
     Active Substance: MONTELUKAST SODIUM
     Indication: Asthma
     Dosage: UNK
     Route: 048
     Dates: end: 20161104
  27. ALESION [Concomitant]
     Active Substance: EPINASTINE HYDROCHLORIDE
     Indication: Asthma
     Dosage: UNK
     Route: 048
     Dates: end: 20200324
  28. OPSUMIT [Concomitant]
     Active Substance: MACITENTAN
     Indication: Heritable pulmonary arterial hypertension
     Dosage: UNK
     Route: 048
     Dates: start: 20150821, end: 20200507
  29. WARFARIN [Concomitant]
     Active Substance: WARFARIN
     Indication: Heritable pulmonary arterial hypertension
     Dosage: UNK
     Route: 048
     Dates: end: 20200507
  30. FLUTICASONE FUROATE\VILANTEROL TRIFENATATE [Concomitant]
     Active Substance: FLUTICASONE FUROATE\VILANTEROL TRIFENATATE
     Indication: Product used for unknown indication
     Dosage: UNK
     Dates: start: 20161105, end: 20200416
  31. TOPSYM [Concomitant]
     Indication: Product used for unknown indication
     Dosage: UNK
     Route: 061
     Dates: end: 20200507
  32. CLOBETASOL [Concomitant]
     Active Substance: CLOBETASOL
     Indication: Product used for unknown indication
     Dosage: UNK
     Route: 061
     Dates: end: 20200507
  33. SERTRALINE HYDROCHLORIDE [Concomitant]
     Active Substance: SERTRALINE HYDROCHLORIDE
     Indication: Product used for unknown indication
     Dosage: UNK
     Route: 048
     Dates: start: 20150525, end: 20200507
  34. CERCINE [Concomitant]
     Active Substance: DIAZEPAM
     Indication: Product used for unknown indication
     Dosage: UNK
     Route: 048
     Dates: start: 2007, end: 20200408
  35. ZYPREXA [Concomitant]
     Active Substance: OLANZAPINE
     Indication: Product used for unknown indication
     Dosage: UNK
     Route: 048
     Dates: start: 2007, end: 20200507
  36. MONTELUKAST SODIUM [Concomitant]
     Active Substance: MONTELUKAST SODIUM
     Indication: Product used for unknown indication
     Dosage: UNK
     Route: 048
     Dates: start: 20161105, end: 201702
  37. MONTELUKAST SODIUM [Concomitant]
     Active Substance: MONTELUKAST SODIUM
     Dosage: UNK
     Route: 048
     Dates: end: 20200324
  38. CODEINE PHOSPHATE [Concomitant]
     Active Substance: CODEINE PHOSPHATE
     Indication: Product used for unknown indication
     Dosage: UNK
     Route: 048
     Dates: start: 20161105, end: 20190710
  39. ADEMPAS [Concomitant]
     Active Substance: RIOCIGUAT
     Indication: Heritable pulmonary arterial hypertension
     Dosage: UNK
     Route: 048
     Dates: start: 20190709, end: 20200324
  40. CALONAL [Concomitant]
     Active Substance: ACETAMINOPHEN
     Indication: Prophylaxis
     Dosage: UNK
     Route: 048
     Dates: start: 20200321, end: 20200507

REACTIONS (16)
  - Bacteraemia [Fatal]
  - Septic shock [Fatal]
  - Gastric cancer [Recovering/Resolving]
  - Vascular device infection [Recovered/Resolved]
  - Renal impairment [Unknown]
  - Pericardial effusion [Unknown]
  - Fluid retention [Recovered/Resolved]
  - Gastric polyps [Recovering/Resolving]
  - Stomach mass [Not Recovered/Not Resolved]
  - Haemorrhage [Not Recovered/Not Resolved]
  - Fall [Recovered/Resolved]
  - Loss of consciousness [Recovering/Resolving]
  - Blood loss anaemia [Unknown]
  - Arthralgia [Recovering/Resolving]
  - Weight increased [Recovering/Resolving]
  - Pyrexia [Recovering/Resolving]

NARRATIVE: CASE EVENT DATE: 20150602
